FAERS Safety Report 26021099 (Version 1)
Quarter: 2025Q4

REPORT INFORMATION
  Report Type: Spontaneous
  Country: JP (occurrence: JP)
  Receive Date: 20251110
  Receipt Date: 20251110
  Transmission Date: 20260118
  Serious: Yes (Death, Hospitalization, Other)
  Sender: BRISTOL-MYERS SQUIBB COMPANY
  Company Number: JP-ONO-2025JP020148

PATIENT
  Age: 80 Year
  Sex: Male

DRUGS (48)
  1. OPDIVO [Suspect]
     Active Substance: NIVOLUMAB
     Indication: Gastric cancer
     Dosage: UNK
     Route: 041
     Dates: start: 20230126, end: 20230126
  2. OPDIVO [Suspect]
     Active Substance: NIVOLUMAB
     Dosage: UNK  2ND ADMINISTRATION (WITH 2-LEVEL DOSE REDUCTION)
     Route: 041
  3. OPDIVO [Suspect]
     Active Substance: NIVOLUMAB
     Dosage: UNK  3RD ADMINISTRATION(WITH 2-LEVEL DOSE REDUCTION)
     Route: 041
  4. OPDIVO [Suspect]
     Active Substance: NIVOLUMAB
     Dosage: UNK   4TH ADMINISTRATION (WITH 2-LEVEL DOSE REDUCTION)
     Route: 041
  5. OPDIVO [Suspect]
     Active Substance: NIVOLUMAB
     Dosage: UNK   5TH ADMINISTRATION(WITH 2-LEVEL DOSE REDUCTION)
     Route: 041
  6. OPDIVO [Suspect]
     Active Substance: NIVOLUMAB
     Dosage: UNK   6TH ADMINISTRATION(WITH 2-LEVEL DOSE REDUCTION)
     Route: 041
  7. OPDIVO [Suspect]
     Active Substance: NIVOLUMAB
     Dosage: UNK  7TH ADMINISTRATION  (WITH 2-LEVEL DOSE REDUCTION)
     Route: 041
  8. OPDIVO [Suspect]
     Active Substance: NIVOLUMAB
     Dosage: UNK   8TH ADMINISTRATION (WITH 2-LEVEL DOSE REDUCTION)
     Route: 041
  9. OPDIVO [Suspect]
     Active Substance: NIVOLUMAB
     Dosage: UNK   9TH ADMINISTRATION(WITH 2-LEVEL DOSE REDUCTION)
     Route: 041
  10. OPDIVO [Suspect]
     Active Substance: NIVOLUMAB
     Dosage: UNK   10TH ADMINISTRATION (WITH 2-LEVEL DOSE REDUCTION)
     Route: 041
  11. OPDIVO [Suspect]
     Active Substance: NIVOLUMAB
     Dosage: UNK   11TH ADMINISTRATION (WITH 2-LEVEL DOSE REDUCTION)
     Route: 041
  12. OPDIVO [Suspect]
     Active Substance: NIVOLUMAB
     Dosage: UNK  12TH ADMINISTRATION (WITH 2-LEVEL DOSE REDUCTION)
     Route: 041
  13. OPDIVO [Suspect]
     Active Substance: NIVOLUMAB
     Dosage: UNK  13TH ADMINISTRATION (WITH 2-LEVEL DOSE REDUCTION)
     Route: 041
  14. OXALIPLATIN [Suspect]
     Active Substance: OXALIPLATIN
     Indication: Gastric cancer
     Dosage: UNK
     Dates: start: 20230126, end: 20230126
  15. OXALIPLATIN [Suspect]
     Active Substance: OXALIPLATIN
     Dosage: UNK  2ND ADMINISTRATION
  16. OXALIPLATIN [Suspect]
     Active Substance: OXALIPLATIN
     Dosage: UNK  3RD ADMINISTRATION
  17. OXALIPLATIN [Suspect]
     Active Substance: OXALIPLATIN
     Dosage: UNK   4TH ADMINISTRATION
  18. OXALIPLATIN [Suspect]
     Active Substance: OXALIPLATIN
     Dosage: UNK   5TH ADMINISTRATION
  19. OXALIPLATIN [Suspect]
     Active Substance: OXALIPLATIN
     Dosage: UNK   6TH ADMINISTRATION
  20. OXALIPLATIN [Suspect]
     Active Substance: OXALIPLATIN
     Dosage: UNK  7TH ADMINISTRATION
  21. OXALIPLATIN [Suspect]
     Active Substance: OXALIPLATIN
     Dosage: UNK   8TH ADMINISTRATION
  22. OXALIPLATIN [Suspect]
     Active Substance: OXALIPLATIN
     Dosage: UNK   9TH ADMINISTRATION
  23. OXALIPLATIN [Suspect]
     Active Substance: OXALIPLATIN
     Dosage: UNK   10TH ADMINISTRATION
  24. OXALIPLATIN [Suspect]
     Active Substance: OXALIPLATIN
     Dosage: UNK   11TH ADMINISTRATION
  25. OXALIPLATIN [Suspect]
     Active Substance: OXALIPLATIN
     Dosage: UNK  12TH ADMINISTRATION
  26. OXALIPLATIN [Suspect]
     Active Substance: OXALIPLATIN
     Dosage: UNK  13TH ADMINISTRATION
  27. GIMERACIL\OTERACIL\TEGAFUR [Concomitant]
     Active Substance: GIMERACIL\OTERACIL POTASSIUM\TEGAFUR
     Indication: Gastric cancer
     Dosage: UNK
     Dates: start: 20230126, end: 20230126
  28. GIMERACIL\OTERACIL\TEGAFUR [Concomitant]
     Active Substance: GIMERACIL\OTERACIL POTASSIUM\TEGAFUR
     Dosage: UNK  2ND ADMINISTRATION
  29. GIMERACIL\OTERACIL\TEGAFUR [Concomitant]
     Active Substance: GIMERACIL\OTERACIL POTASSIUM\TEGAFUR
     Dosage: UNK  3RD ADMINISTRATION
  30. GIMERACIL\OTERACIL\TEGAFUR [Concomitant]
     Active Substance: GIMERACIL\OTERACIL POTASSIUM\TEGAFUR
     Dosage: UNK   4TH ADMINISTRATION
  31. GIMERACIL\OTERACIL\TEGAFUR [Concomitant]
     Active Substance: GIMERACIL\OTERACIL POTASSIUM\TEGAFUR
     Dosage: UNK   5TH ADMINISTRATION
  32. GIMERACIL\OTERACIL\TEGAFUR [Concomitant]
     Active Substance: GIMERACIL\OTERACIL POTASSIUM\TEGAFUR
     Dosage: UNK   6TH ADMINISTRATION
  33. GIMERACIL\OTERACIL\TEGAFUR [Concomitant]
     Active Substance: GIMERACIL\OTERACIL POTASSIUM\TEGAFUR
     Dosage: UNK  7TH ADMINISTRATION
  34. GIMERACIL\OTERACIL\TEGAFUR [Concomitant]
     Active Substance: GIMERACIL\OTERACIL POTASSIUM\TEGAFUR
     Dosage: UNK   8TH ADMINISTRATION
  35. GIMERACIL\OTERACIL\TEGAFUR [Concomitant]
     Active Substance: GIMERACIL\OTERACIL POTASSIUM\TEGAFUR
     Dosage: UNK   9TH ADMINISTRATION
  36. GIMERACIL\OTERACIL\TEGAFUR [Concomitant]
     Active Substance: GIMERACIL\OTERACIL POTASSIUM\TEGAFUR
     Dosage: UNK   10TH ADMINISTRATION
  37. GIMERACIL\OTERACIL\TEGAFUR [Concomitant]
     Active Substance: GIMERACIL\OTERACIL POTASSIUM\TEGAFUR
     Dosage: UNK   11TH ADMINISTRATION
  38. GIMERACIL\OTERACIL\TEGAFUR [Concomitant]
     Active Substance: GIMERACIL\OTERACIL POTASSIUM\TEGAFUR
     Dosage: UNK  12TH ADMINISTRATION
  39. GIMERACIL\OTERACIL\TEGAFUR [Concomitant]
     Active Substance: GIMERACIL\OTERACIL POTASSIUM\TEGAFUR
     Dosage: UNK  13TH ADMINISTRATION
  40. DABIGATRAN ETEXILATE MESYLATE [Concomitant]
     Active Substance: DABIGATRAN ETEXILATE MESYLATE
     Indication: Product used for unknown indication
     Dosage: UNK
  41. LINAGLIPTIN [Concomitant]
     Active Substance: LINAGLIPTIN
     Indication: Product used for unknown indication
     Dosage: UNK
  42. TADALAFIL [Concomitant]
     Active Substance: TADALAFIL
     Indication: Product used for unknown indication
     Dosage: UNK
  43. DIGOXIN [Concomitant]
     Active Substance: DIGOXIN
     Indication: Product used for unknown indication
     Dosage: UNK
  44. NIFEDIPINE [Concomitant]
     Active Substance: NIFEDIPINE
     Indication: Product used for unknown indication
     Dosage: UNK
  45. DILTIAZEM HYDROCHLORIDE [Concomitant]
     Active Substance: DILTIAZEM HYDROCHLORIDE
     Indication: Product used for unknown indication
     Dosage: UNK
  46. OLMESARTAN [Concomitant]
     Active Substance: OLMESARTAN
     Indication: Product used for unknown indication
     Dosage: UNK
  47. BISOPROLOL FUMARATE [Concomitant]
     Active Substance: BISOPROLOL FUMARATE
     Indication: Product used for unknown indication
     Dosage: UNK
  48. VIBEGRON [Concomitant]
     Active Substance: VIBEGRON
     Indication: Product used for unknown indication
     Dosage: UNK

REACTIONS (8)
  - Dehydration [Recovering/Resolving]
  - Immune-mediated lung disease [Fatal]
  - Diarrhoea [Recovering/Resolving]
  - Decreased appetite [Recovering/Resolving]
  - Malaise [Unknown]
  - Taste disorder [Unknown]
  - Oedema peripheral [Unknown]
  - Hypoaesthesia [Unknown]

NARRATIVE: CASE EVENT DATE: 20230220
